FAERS Safety Report 5507988-6 (Version None)
Quarter: 2007Q4

REPORT INFORMATION
  Report Type: 
  Country: None (occurrence: None)
  Receive Date: 20071106
  Receipt Date: 20071024
  Transmission Date: 20080405
  Serious: Yes (Other)
  Sender: FDA-Public Use
  Company Number: GB-PFIZER INC-2007061294

PATIENT
  Age: 37 Year
  Sex: Female

DRUGS (3)
  1. PREGABALIN [Suspect]
     Indication: BACK PAIN
     Dates: start: 20060101, end: 20070701
  2. OXYCONTIN [Concomitant]
     Indication: PAIN
  3. AMITRIPTYLINE HCL [Concomitant]
     Indication: PAIN

REACTIONS (5)
  - AMNESIA [None]
  - ARTHRALGIA [None]
  - JOINT SWELLING [None]
  - OEDEMA PERIPHERAL [None]
  - WEIGHT INCREASED [None]
